FAERS Safety Report 7506971-9 (Version None)
Quarter: 2011Q2

REPORT INFORMATION
  Report Type: 
  Country: None (occurrence: None)
  Receive Date: 20110526
  Receipt Date: 20110517
  Transmission Date: 20111010
  Serious: Yes (Other)
  Sender: FDA-Public Use
  Company Number: PHHY2011CH42197

PATIENT
  Age: 20 Year
  Sex: Female

DRUGS (4)
  1. DESOGESTREL AND ETHINYL ESTRADIOL [Suspect]
     Dosage: 20 WEEKS
     Dates: start: 20090101, end: 20100709
  2. ACETAMINOPHEN [Suspect]
     Dosage: UNK UKN, UNK
     Dates: start: 20100501, end: 20100601
  3. PENICILLIN V [Suspect]
     Dosage: FOR ONE WEEK
     Dates: start: 20100501, end: 20100601
  4. MEFENAMIC ACID [Suspect]
     Dosage: 500 MG, TID
     Dates: start: 20100501, end: 20100601

REACTIONS (3)
  - DRUG EXPOSURE DURING PREGNANCY [None]
  - ABORTION SPONTANEOUS [None]
  - PREMATURE SEPARATION OF PLACENTA [None]
